FAERS Safety Report 9257759 (Version 2)
Quarter: 2013Q2

REPORT INFORMATION
  Report Type: Report from Study
  Country: US (occurrence: US)
  Receive Date: 20130426
  Receipt Date: 20130524
  Transmission Date: 20140414
  Serious: Yes (Disabling, Other)
  Sender: FDA-Public Use
  Company Number: US-ASTELLAS-2013US004429

PATIENT
  Age: 77 Year
  Sex: Female
  Weight: 62 kg

DRUGS (3)
  1. ERLOTINIB TABLET [Suspect]
     Indication: NON-SMALL CELL LUNG CANCER
     Dosage: 150 MG, UID/QD
     Route: 048
     Dates: start: 20130307, end: 20130315
  2. ERLOTINIB TABLET [Suspect]
     Dosage: 75 MG, UID/QD
     Route: 048
     Dates: start: 20130315, end: 201303
  3. ERLOTINIB TABLET [Suspect]
     Dosage: 75 MG, UID/QD
     Route: 048
     Dates: start: 20130401, end: 20130408

REACTIONS (11)
  - Blindness [Recovering/Resolving]
  - Dry eye [Not Recovered/Not Resolved]
  - Dehydration [Recovered/Resolved]
  - Diarrhoea [Recovered/Resolved]
  - Malignant neoplasm progression [Unknown]
  - Asthenia [Recovered/Resolved]
  - Dizziness [Recovered/Resolved]
  - Skin toxicity [Recovered/Resolved]
  - Stomatitis [Recovered/Resolved]
  - Dizziness [Recovered/Resolved]
  - Pyrexia [Not Recovered/Not Resolved]
